FAERS Safety Report 4300262-5 (Version None)
Quarter: 2004Q1

REPORT INFORMATION
  Report Type: 
  Country: None (occurrence: None)
  Receive Date: 20040218
  Receipt Date: 20040218
  Transmission Date: 20041129
  Serious: Yes (Death)
  Sender: FDA-Public Use
  Company Number: None

PATIENT
  Age: 75 Year
  Sex: Female
  Weight: 72.1 kg

DRUGS (8)
  1. REOPRO [Suspect]
     Indication: CAROTID ARTERY DISEASE
     Dosage: 18.2 MG ONE TIME INTRAVENOUS BOLUS
     Route: 040
     Dates: start: 20030505, end: 20030505
  2. REOPRO [Suspect]
     Indication: STENT PLACEMENT
     Dosage: 18.2 MG ONE TIME INTRAVENOUS BOLUS
     Route: 040
     Dates: start: 20030505, end: 20030505
  3. REOPRO [Suspect]
     Indication: CAROTID ARTERY DISEASE
     Dosage: 0.69 MG INTRAVENOUS DRIP
     Route: 041
     Dates: start: 20030505, end: 20030505
  4. REOPRO [Suspect]
     Indication: STENT PLACEMENT
     Dosage: 0.69 MG INTRAVENOUS DRIP
     Route: 041
     Dates: start: 20030505, end: 20030505
  5. ATROPINE [Concomitant]
  6. CEFAZOLIN [Concomitant]
  7. CLOPIDOGREL BISULFATE [Concomitant]
  8. ASPIRIN [Concomitant]

REACTIONS (3)
  - CEREBROVASCULAR ACCIDENT [None]
  - HAEMORRHAGE INTRACRANIAL [None]
  - RESPIRATORY ARREST [None]
